FAERS Safety Report 6149191-5 (Version None)
Quarter: 2009Q2

REPORT INFORMATION
  Report Type: 
  Country: None (occurrence: None)
  Receive Date: 20090409
  Receipt Date: 20090406
  Transmission Date: 20091009
  Serious: Yes (Other)
  Sender: FDA-Public Use
  Company Number: US-SP-2009-01441

PATIENT
  Age: 42 Year
  Sex: Female

DRUGS (2)
  1. BCG  THERAPEUTICS [Suspect]
     Indication: ACCIDENTAL EXPOSURE
     Route: 065
  2. BCG  THERAPEUTICS [Suspect]
     Route: 065

REACTIONS (7)
  - ACCIDENTAL EXPOSURE [None]
  - ERYTHEMA [None]
  - GRANULOMA [None]
  - MYCOBACTERIAL INFECTION [None]
  - PAIN [None]
  - SWELLING [None]
  - WOUND DRAINAGE [None]
